FAERS Safety Report 8803540 (Version 1)
Quarter: 2012Q4

REPORT INFORMATION
  Report Type: 
  Country: CA (occurrence: CA)
  Receive Date: 20120924
  Receipt Date: 20120924
  Transmission Date: 20130627
  Serious: Yes (Other)
  Sender: FDA-Public Use
  Company Number: PHHY2012CA081936

PATIENT
  Age: 59 Year
  Sex: Female

DRUGS (4)
  1. ACLASTA [Suspect]
     Indication: OSTEOPOROSIS
     Dosage: 5 mg/ 100 ml
     Route: 042
     Dates: start: 20090818
  2. ACLASTA [Suspect]
     Dosage: 5 mg/100 ml
     Route: 042
     Dates: start: 20100920
  3. ACLASTA [Suspect]
     Dosage: 5 mg/ 100 ml
     Route: 042
     Dates: start: 20110920
  4. NEOMYCIN [Concomitant]
     Dosage: 375 mg, UNK

REACTIONS (4)
  - Spinal pain [Recovered/Resolved]
  - Mobility decreased [Recovered/Resolved]
  - Activities of daily living impaired [Recovered/Resolved]
  - Pain [Recovered/Resolved]
